FAERS Safety Report 5425686-4 (Version None)
Quarter: 2007Q3

REPORT INFORMATION
  Report Type: 
  Country: None (occurrence: None)
  Receive Date: 20070824
  Receipt Date: 20070813
  Transmission Date: 20080115
  Serious: Yes (Hospitalization)
  Sender: FDA-Public Use
  Company Number: FR-PFIZER INC-2007068236

PATIENT
  Age: 43 Year
  Sex: Female

DRUGS (13)
  1. LINEZOLID [Suspect]
     Indication: BACILLUS INFECTION
  2. LINEZOLID [Suspect]
     Indication: STAPHYLOCOCCAL INFECTION
  3. METRONIDAZOLE TABLET [Suspect]
     Indication: BACILLUS INFECTION
     Dosage: DAILY DOSE:1500MG-FREQ:DAILY
  4. METRONIDAZOLE TABLET [Suspect]
     Indication: STAPHYLOCOCCAL INFECTION
  5. CYCLOSPORINE [Concomitant]
     Dosage: DAILY DOSE:100MG
  6. PREDNISONE TAB [Concomitant]
     Dosage: DAILY DOSE:10MG
  7. OMEPRAZOLE [Concomitant]
     Dosage: DAILY DOSE:20MG
  8. ATENOLOL [Concomitant]
     Dosage: DAILY DOSE:50MG
  9. URAPIDIL [Concomitant]
     Dosage: DAILY DOSE:180MG
  10. HEPARIN [Concomitant]
     Route: 058
  11. FUROSEMIDE [Concomitant]
     Dosage: DAILY DOSE:40MG
  12. REPAGLINIDE [Concomitant]
     Dosage: DAILY DOSE:3MG
  13. INSULIN [Concomitant]

REACTIONS (1)
  - PANCYTOPENIA [None]
